FAERS Safety Report 7936664-5 (Version None)
Quarter: 2011Q4

REPORT INFORMATION
  Report Type: 
  Country: None (occurrence: None)
  Receive Date: 20111121
  Receipt Date: 20111109
  Transmission Date: 20120403
  Serious: Yes (Death, Hospitalization)
  Sender: FDA-Public Use
  Company Number: 2011MA016435

PATIENT
  Age: 41 Year
  Sex: Male

DRUGS (4)
  1. CITALOPRAM HYDROBROMIDE [Suspect]
     Indication: PRODUCT USED FOR UNKNOWN INDICATION
  2. CLOZAPINE [Suspect]
     Indication: PRODUCT USED FOR UNKNOWN INDICATION
  3. DIAZEPAM [Suspect]
     Indication: PRODUCT USED FOR UNKNOWN INDICATION
  4. PROCYCLIDINE HYDROCHLORIDE 2MG TAB [Suspect]
     Indication: PRODUCT USED FOR UNKNOWN INDICATION

REACTIONS (8)
  - PULSELESS ELECTRICAL ACTIVITY [None]
  - MULTIPLE DRUG OVERDOSE INTENTIONAL [None]
  - CARDIAC ARREST [None]
  - HYPOTENSION [None]
  - ASPIRATION [None]
  - GRAND MAL CONVULSION [None]
  - CIRCULATORY COLLAPSE [None]
  - COMA SCALE ABNORMAL [None]
